FAERS Safety Report 12996265 (Version 1)
Quarter: 2016Q4

REPORT INFORMATION
  Report Type: Spontaneous
  Country: NO (occurrence: NO)
  Receive Date: 20161203
  Receipt Date: 20161203
  Transmission Date: 20170207
  Serious: Yes (Other)
  Sender: FDA-Public Use
  Company Number: NO-ACCORD-045940

PATIENT
  Age: 54 Year
  Sex: Female
  Weight: 62 kg

DRUGS (5)
  1. FLUOROURACIL. [Suspect]
     Active Substance: FLUOROURACIL
     Indication: GASTROINTESTINAL CARCINOMA
     Dosage: 850 MG IV ON DAY 1 AND 2
     Route: 042
     Dates: start: 20131205, end: 20150520
  2. OXALIPLATIN. [Suspect]
     Active Substance: OXALIPLATIN
     Indication: GASTROINTESTINAL CARCINOMA
     Dosage: 120 MG, CYCLIC, 5TH TREATMENT
     Route: 042
     Dates: start: 20140206, end: 20140206
  3. FOLINIC ACID [Suspect]
     Active Substance: LEUCOVORIN
     Indication: GASTROINTESTINAL CARCINOMA
     Dosage: 100 MG IV ON DAY 1 AND 2
     Route: 042
     Dates: start: 20131205, end: 20150520
  4. DEXAMETHASONE. [Concomitant]
     Active Substance: DEXAMETHASONE
     Indication: PREMEDICATION
     Dosage: 8 MG, 2X/DAY FROM THE DAY BEFORE AND LASTING 2-3 DAYS
     Route: 048
  5. ZOFRAN [Concomitant]
     Active Substance: ONDANSETRON HYDROCHLORIDE
     Indication: PREMEDICATION
     Dosage: 8 MG, 2X/DAY ON DAY 1
     Route: 048

REACTIONS (10)
  - Hypersensitivity [Unknown]
  - Infection [Unknown]
  - Neoplasm recurrence [Unknown]
  - Neuropathy peripheral [Not Recovered/Not Resolved]
  - Pyrexia [Unknown]
  - Nail psoriasis [Recovering/Resolving]
  - Dyspnoea [Unknown]
  - Pigmentation disorder [Recovering/Resolving]
  - Mouth injury [Unknown]
  - Throat tightness [Unknown]

NARRATIVE: CASE EVENT DATE: 20140101
